FAERS Safety Report 4448344-1 (Version None)
Quarter: 2004Q3

REPORT INFORMATION
  Report Type: 
  Country: None (occurrence: None)
  Receive Date: 20040913
  Receipt Date: 20040827
  Transmission Date: 20050211
  Serious: Yes (Other)
  Sender: FDA-Public Use
  Company Number: 2004230390GB

PATIENT
  Sex: Female

DRUGS (1)
  1. AROMASIN [Suspect]

REACTIONS (4)
  - ASTHMA [None]
  - FATIGUE [None]
  - INSOMNIA [None]
  - RASH [None]
